FAERS Safety Report 14728725 (Version 2)
Quarter: 2018Q3

REPORT INFORMATION
  Report Type: Report from Study
  Country: DE (occurrence: DE)
  Receive Date: 20180406
  Receipt Date: 20180905
  Transmission Date: 20181010
  Serious: Yes (Hospitalization)
  Sender: FDA-Public Use
  Company Number: DE-INCYTE CORPORATION-2018IN003084

PATIENT

DRUGS (6)
  1. INCB018424 [Suspect]
     Active Substance: RUXOLITINIB
     Dosage: 20 MG, QD
     Route: 048
     Dates: start: 20161011, end: 20170102
  2. INCB018424 [Suspect]
     Active Substance: RUXOLITINIB
     Dosage: 20 MG, QD
     Route: 048
     Dates: start: 20170203, end: 20171010
  3. INCB018424 [Suspect]
     Active Substance: RUXOLITINIB
     Dosage: UNK, QD
     Route: 048
     Dates: start: 20161005, end: 20161010
  4. INCB018424 [Suspect]
     Active Substance: RUXOLITINIB
     Dosage: 30 UNK, QD
     Route: 048
     Dates: start: 20171011
  5. INCB018424 [Suspect]
     Active Substance: RUXOLITINIB
     Indication: PRIMARY MYELOFIBROSIS
     Dosage: 20 MG, QD
     Route: 048
     Dates: start: 20160928
  6. INCB018424 [Suspect]
     Active Substance: RUXOLITINIB
     Dosage: UNK, QD
     Route: 048
     Dates: start: 20170103, end: 20170202

REACTIONS (2)
  - Chest pain [Recovered/Resolved]
  - Pneumonia [Not Recovered/Not Resolved]

NARRATIVE: CASE EVENT DATE: 20180320
